FAERS Safety Report 5966159-X (Version None)
Quarter: 2008Q4

REPORT INFORMATION
  Report Type: 
  Country: None (occurrence: None)
  Receive Date: 20081125
  Receipt Date: 20081113
  Transmission Date: 20090506
  Serious: No
  Sender: FDA-Public Use
  Company Number: US-JNJFOC-20081103905

PATIENT
  Sex: Male
  Weight: 83.92 kg

DRUGS (4)
  1. FENTANYL TRANSDERMAL SYSTEM [Suspect]
     Route: 062
  2. FENTANYL TRANSDERMAL SYSTEM [Suspect]
     Indication: PAIN
     Route: 062
  3. NEURONTIN [Concomitant]
     Indication: PAIN
     Dosage: 2 TABLETS OF 600 MG.
     Route: 048
  4. ACTIG [Concomitant]
     Indication: PAIN
     Dosage: AS NEEDED TRANSMUCOSAL

REACTIONS (2)
  - APPLICATION SITE ERYTHEMA [None]
  - INCORRECT DRUG ADMINISTRATION DURATION [None]
